FAERS Safety Report 10434267 (Version 2)
Quarter: 2014Q3

REPORT INFORMATION
  Report Type: Spontaneous
  Country: GB (occurrence: GB)
  Receive Date: 20140905
  Receipt Date: 20140917
  Transmission Date: 20150326
  Serious: Yes (Other)
  Sender: FDA-Public Use
  Company Number: GB-BAXTER-2014BAX053411

PATIENT
  Age: 60 Year
  Sex: Female

DRUGS (1)
  1. ARTISS FROZEN [Suspect]
     Active Substance: FIBRINOGEN HUMAN\THROMBIN HUMAN
     Indication: TISSUE SEALING
     Route: 065

REACTIONS (4)
  - Wrong technique in drug usage process [Recovered/Resolved]
  - Localised infection [Unknown]
  - Streptococcal infection [Recovered/Resolved with Sequelae]
  - Telangiectasia [Recovered/Resolved with Sequelae]

NARRATIVE: CASE EVENT DATE: 20140428
